FAERS Safety Report 6385681-8 (Version None)
Quarter: 2009Q4

REPORT INFORMATION
  Report Type: 
  Country: None (occurrence: None)
  Receive Date: 20091002
  Receipt Date: 20081015
  Transmission Date: 20100525
  Serious: No
  Sender: FDA-Public Use
  Company Number: US-ASTRAZENECA-2008UW22732

PATIENT
  Age: 60 Year
  Sex: Female

DRUGS (6)
  1. ARIMIDEX [Suspect]
     Route: 048
     Dates: start: 20070101
  2. OXYCONTIN [Concomitant]
     Dosage: 7 TABLETS DAILY
     Route: 048
  3. OXYCODONE HCL [Concomitant]
     Route: 048
  4. MORPHINE SULFATE [Concomitant]
     Indication: ABDOMINAL PAIN
     Route: 048
  5. PREVACID [Concomitant]
     Route: 048
  6. LACTULOSE [Concomitant]
     Route: 048

REACTIONS (6)
  - AMNESIA [None]
  - ARTHRALGIA [None]
  - HOT FLUSH [None]
  - JOINT STIFFNESS [None]
  - JOINT SWELLING [None]
  - NIGHT SWEATS [None]
